FAERS Safety Report 5511663-1 (Version None)
Quarter: 2007Q4

REPORT INFORMATION
  Report Type: 
  Country: None (occurrence: None)
  Receive Date: 20071109
  Receipt Date: 20071029
  Transmission Date: 20080405
  Serious: Yes (Other)
  Sender: FDA-Public Use
  Company Number: US-PFIZER INC-2007061801

PATIENT
  Sex: Female

DRUGS (2)
  1. VARENICLINE TABLETS [Suspect]
     Indication: EX-SMOKER
     Dates: start: 20070501, end: 20070801
  2. ALL OTHER THERAPEUTIC PRODUCTS [Concomitant]

REACTIONS (5)
  - AGITATION [None]
  - ANGER [None]
  - FEELING ABNORMAL [None]
  - NERVOUSNESS [None]
  - STRESS [None]
